FAERS Safety Report 4298898-3 (Version None)
Quarter: 2004Q1

REPORT INFORMATION
  Report Type: 
  Country: None (occurrence: None)
  Receive Date: 20040126
  Receipt Date: 20031110
  Transmission Date: 20041129
  Serious: No
  Sender: FDA-Public Use
  Company Number: USA031152129

PATIENT
  Sex: Female

DRUGS (7)
  1. STRATTERA [Suspect]
     Indication: ATTENTION DEFICIT/HYPERACTIVITY DISORDER
     Dosage: 25 MG/1 DAY; A FEW DAYS
  2. STRATTERA [Suspect]
     Indication: MEMORY IMPAIRMENT
     Dosage: 25 MG/1 DAY; A FEW DAYS
  3. PROZAC [Concomitant]
  4. BLOOD PRESSURE MEDICATION [Concomitant]
  5. HORMONE REPLACEMENT THERAPY [Concomitant]
  6. ALBUTEROL [Concomitant]
  7. RITALIN [Concomitant]

REACTIONS (1)
  - DYSURIA [None]
